FAERS Safety Report 6722441-X (Version None)
Quarter: 2010Q2

REPORT INFORMATION
  Report Type: 
  Country: None (occurrence: None)
  Receive Date: 20100506
  Receipt Date: 20080108
  Transmission Date: 20101027
  Serious: No
  Sender: FDA-Public Use
  Company Number: 2008-00011

PATIENT
  Sex: Female

DRUGS (1)
  1. ZICAM COLD REMEDY NASAL GEL [Suspect]
     Dosage: QD X 1 DAY
     Dates: start: 20071231, end: 20071231

REACTIONS (2)
  - AGEUSIA [None]
  - ANOSMIA [None]
